FAERS Safety Report 23154672 (Version 1)
Quarter: 2023Q4

REPORT INFORMATION
  Report Type: Spontaneous
  Country: US (occurrence: None)
  Receive Date: 20231106
  Receipt Date: 20231106
  Transmission Date: 20240109
  Serious: Yes (Other)
  Sender: FDA-Public Use
  Company Number: None

PATIENT
  Age: 32 Year
  Sex: Female

DRUGS (1)
  1. ENBREL [Suspect]
     Active Substance: ETANERCEPT
     Dosage: 50MG WEEKLY
     Dates: start: 20210716

REACTIONS (2)
  - Metabolic surgery [None]
  - Intentional dose omission [None]

NARRATIVE: CASE EVENT DATE: 20231025
